FAERS Safety Report 19635704 (Version 2)
Quarter: 2021Q3

REPORT INFORMATION
  Report Type: Report from Study
  Country: EG (occurrence: EG)
  Receive Date: 20210729
  Receipt Date: 20210813
  Transmission Date: 20211014
  Serious: Yes (Death, Other)
  Sender: FDA-Public Use
  Company Number: NVSC2021EG171413

PATIENT
  Age: 73 Year
  Sex: Male

DRUGS (3)
  1. TORSERETIC [Concomitant]
     Active Substance: TORSEMIDE
     Indication: PRODUCT USED FOR UNKNOWN INDICATION
     Dosage: 50 MG, UNKNOWN
     Route: 065
  2. ENTRESTO [Suspect]
     Active Substance: SACUBITRIL\VALSARTAN
     Indication: CARDIAC FAILURE
     Dosage: 50 MG, BID
     Route: 048
     Dates: start: 20210105
  3. SPECTONE [Concomitant]
     Indication: PRODUCT USED FOR UNKNOWN INDICATION
     Dosage: 50 MG, UNKNOWN
     Route: 065

REACTIONS (5)
  - Cardiac arrest [Fatal]
  - Cardiomyopathy [Unknown]
  - Multiple organ dysfunction syndrome [Fatal]
  - Ejection fraction decreased [Unknown]
  - Depressed mood [Fatal]

NARRATIVE: CASE EVENT DATE: 20210513
